FAERS Safety Report 4394075-6 (Version None)
Quarter: 2004Q3

REPORT INFORMATION
  Report Type: 
  Country: None (occurrence: None)
  Receive Date: 20040710
  Receipt Date: 20040129
  Transmission Date: 20050211
  Serious: Yes (Hospitalization)
  Sender: FDA-Public Use
  Company Number: FR-MERCK-0401FRA00075

PATIENT
  Age: 65 Year
  Sex: Female
  Weight: 105 kg

DRUGS (2)
  1. ACETAMINOPHEN [Suspect]
     Indication: ARTHRALGIA
     Route: 048
     Dates: start: 20031227, end: 20040106
  2. VIOXX [Suspect]
     Indication: ARTHRALGIA
     Route: 048
     Dates: start: 20031227, end: 20031229

REACTIONS (2)
  - CYTOLYTIC HEPATITIS [None]
  - HEPATITIS CHOLESTATIC [None]
